FAERS Safety Report 23636200 (Version 1)
Quarter: 2024Q1

REPORT INFORMATION
  Report Type: Spontaneous
  Country: CN (occurrence: CN)
  Receive Date: 20240315
  Receipt Date: 20240315
  Transmission Date: 20240409
  Serious: Yes (Hospitalization)
  Sender: FDA-Public Use
  Company Number: CN-SHANGHAI JUNSHI BIOSCIENCES CO., LTD.-CN2024009447

PATIENT

DRUGS (6)
  1. TORIPALIMAB [Suspect]
     Active Substance: TORIPALIMAB
     Indication: Nasopharyngeal cancer
     Dosage: 240 MG (D3)
     Route: 041
     Dates: start: 20231226, end: 20231226
  2. TORIPALIMAB [Suspect]
     Active Substance: TORIPALIMAB
     Dosage: 240 MG (D3)
     Route: 041
     Dates: start: 20240119, end: 20240120
  3. GEMCITABINE HYDROCHLORIDE [Suspect]
     Active Substance: GEMCITABINE HYDROCHLORIDE
     Indication: Nasopharyngeal cancer
     Dosage: 1.8 G (D1,D8)
     Route: 041
     Dates: start: 20231226, end: 20231226
  4. GEMCITABINE HYDROCHLORIDE [Suspect]
     Active Substance: GEMCITABINE HYDROCHLORIDE
     Dosage: 1.8 G (D1, D8)
     Route: 041
     Dates: start: 20240119, end: 20240119
  5. CISPLATIN [Suspect]
     Active Substance: CISPLATIN
     Indication: Nasopharyngeal cancer
     Dosage: 65 MG (D1-D2), QD
     Route: 041
     Dates: start: 20231226
  6. CISPLATIN [Suspect]
     Active Substance: CISPLATIN
     Dosage: 65 MG (D1-D2), QD
     Route: 041
     Dates: start: 20240119, end: 20240120

REACTIONS (2)
  - Myelosuppression [Recovering/Resolving]
  - Off label use [Unknown]

NARRATIVE: CASE EVENT DATE: 20231226
